FAERS Safety Report 19148185 (Version 3)
Quarter: 2021Q2

REPORT INFORMATION
  Report Type: Spontaneous
  Country: JP (occurrence: JP)
  Receive Date: 20210416
  Receipt Date: 20210603
  Transmission Date: 20210717
  Serious: Yes (Life-Threatening, Other)
  Sender: FDA-Public Use
  Company Number: JP-GUERBET-JP-20210051

PATIENT
  Age: 65 Year
  Sex: Female
  Weight: 46 kg

DRUGS (1)
  1. OPTIRAY 320 [Suspect]
     Active Substance: IOVERSOL
     Indication: COMPUTERISED TOMOGRAM
     Route: 042
     Dates: start: 20210406, end: 20210406

REACTIONS (7)
  - Eyelids pruritus [Unknown]
  - Loss of consciousness [Recovered/Resolved]
  - Oxygen saturation decreased [Unknown]
  - Erythema of eyelid [Unknown]
  - Pruritus [Unknown]
  - Blood pressure decreased [Unknown]
  - Erythema [Unknown]

NARRATIVE: CASE EVENT DATE: 20210406
